FAERS Safety Report 23310531 (Version 1)
Quarter: 2023Q4

REPORT INFORMATION
  Report Type: Spontaneous
  Country: US (occurrence: US)
  Receive Date: 20231218
  Receipt Date: 20231218
  Transmission Date: 20240109
  Serious: No
  Sender: FDA-Public Use
  Company Number: US-PROGENICS PHARMACEUTICALS, INC.-LMI-2023-01362

PATIENT
  Age: 84 Year
  Sex: Female

DRUGS (2)
  1. PYLARIFY [Suspect]
     Active Substance: PIFLUFOLASTAT F-18
     Indication: Product used for unknown indication
     Dosage: 12.58 MILLICURIE
     Route: 042
     Dates: start: 20231116, end: 20231116
  2. KEYTRUDA [Concomitant]
     Active Substance: PEMBROLIZUMAB
     Indication: Product used for unknown indication
     Dosage: UNK
     Dates: start: 202311

REACTIONS (3)
  - Product administration error [Recovered/Resolved]
  - Off label use [Recovered/Resolved]
  - Wrong product administered [Recovered/Resolved]

NARRATIVE: CASE EVENT DATE: 20231116
